FAERS Safety Report 9022423 (Version 2)
Quarter: 2013Q1

REPORT INFORMATION
  Report Type: Spontaneous
  Country: JP (occurrence: JP)
  Receive Date: 20130118
  Receipt Date: 20130226
  Transmission Date: 20140127
  Serious: Yes (Death)
  Sender: FDA-Public Use
  Company Number: JP-ELI_LILLY_AND_COMPANY-JP201301003167

PATIENT
  Age: 57 None
  Sex: Male
  Weight: 64 kg

DRUGS (12)
  1. AKINETON                           /00079503/ [Concomitant]
     Indication: TREMOR
     Dosage: 5 MG, QD
     Route: 030
     Dates: start: 20121221, end: 20121221
  2. HALOMONTH [Concomitant]
     Dosage: 50 MG, QD
     Route: 030
     Dates: start: 20121203, end: 20121203
  3. ZYPREXA [Suspect]
     Indication: SCHIZOPHRENIA
     Dosage: 10 MG, BID
     Route: 030
     Dates: start: 20121217, end: 20121218
  4. ZYPREXA [Suspect]
     Indication: SCHIZOPHRENIA
     Dosage: 20 MG, QD
     Route: 048
     Dates: start: 20121219, end: 20121220
  5. ZYPREXA [Suspect]
     Dosage: 10 MG, QD
     Route: 048
     Dates: start: 20121221, end: 20121221
  6. ABILIFY [Concomitant]
     Dosage: 24 MG, QD
     Route: 048
     Dates: start: 20121219, end: 20121221
  7. ABILIFY [Concomitant]
     Dosage: 12 MG, QD
     Route: 048
     Dates: start: 20121222, end: 20121222
  8. ABILIFY [Concomitant]
     Dosage: 6 ML, TID
     Route: 048
     Dates: start: 20121222, end: 20121222
  9. LUNESTA [Concomitant]
     Dosage: 3 MG, QD
     Route: 048
     Dates: start: 20121214, end: 20121220
  10. SERENACE [Concomitant]
     Dosage: 5 MG, QD
     Route: 030
     Dates: start: 20121221, end: 20121221
  11. SERENACE [Concomitant]
     Dosage: 1 ML, QD
     Route: 048
     Dates: start: 20121214, end: 20121221
  12. AKINETON                           /00079503/ [Concomitant]
     Indication: TREMOR
     Dosage: 1 MG, TID
     Route: 048
     Dates: start: 20121221, end: 20121221

REACTIONS (9)
  - Respiratory failure [Fatal]
  - Cardio-respiratory arrest [Fatal]
  - Vomiting [Unknown]
  - Salivary hypersecretion [Unknown]
  - Dysarthria [Unknown]
  - Fluid intake reduced [Not Recovered/Not Resolved]
  - Hypophagia [Not Recovered/Not Resolved]
  - Pyrexia [Unknown]
  - Blood glucose increased [Unknown]
